FAERS Safety Report 7789104-3 (Version None)
Quarter: 2011Q3

REPORT INFORMATION
  Report Type: 
  Country: None (occurrence: None)
  Receive Date: 20110930
  Receipt Date: 20110920
  Transmission Date: 20111222
  Serious: Yes (Death)
  Sender: FDA-Public Use
  Company Number: NO-JNJFOC-20110908474

PATIENT
  Age: 46 Year
  Sex: Female
  Weight: 38 kg

DRUGS (2)
  1. INFLIXIMAB, RECOMBINANT [Suspect]
     Indication: CROHN'S DISEASE
     Route: 042
     Dates: start: 20060201, end: 20060901
  2. PREDNISOLONE [Concomitant]
     Route: 065

REACTIONS (5)
  - MYCOBACTERIUM ABSCESSUS INFECTION [None]
  - PNEUMONIA [None]
  - BRONCHITIS [None]
  - MYOCARDIAL INFARCTION [None]
  - CHOLECYSTITIS [None]
